FAERS Safety Report 8495870-4 (Version None)
Quarter: 2012Q3

REPORT INFORMATION
  Report Type: 
  Country: None (occurrence: None)
  Receive Date: 20120709
  Receipt Date: 20120703
  Transmission Date: 20120928
  Serious: No
  Sender: FDA-Public Use
  Company Number: US-PFIZER INC-2012159819

PATIENT
  Age: 47 Year
  Sex: Male

DRUGS (15)
  1. LYRICA [Suspect]
     Dosage: 75 MG, 3X/DAY
     Route: 048
  2. ZANTAC [Concomitant]
     Dosage: 300 MG, UNK
     Route: 048
  3. VENTOLIN [Concomitant]
     Dosage: 90 MCG/ACTUATION IN AERO
  4. DALMANE [Concomitant]
     Dosage: 30 MG, UNK
     Route: 048
  5. WELLBUTRIN XL [Concomitant]
     Dosage: 300 MG, UNK (TB24)
     Route: 048
  6. IMODIUM [Concomitant]
     Dosage: 2 MG, UNK
     Route: 048
  7. PROVENTIL [Concomitant]
     Dosage: 90 MCG/ACTUATION IN AERO
  8. FLEXERIL [Concomitant]
     Dosage: 10 MG, UNK
     Route: 048
  9. MIRALAX [Concomitant]
     Dosage: 17 GRAM/DOSE POWD
     Route: 048
  10. OXYCODONE HCL [Concomitant]
     Dosage: 30 MG, UNK
     Route: 048
  11. ZOLOFT [Concomitant]
     Dosage: 100 MG, UNK
     Route: 048
  12. OXYCONTIN [Concomitant]
     Dosage: 80 MG, UNK (TB12)
     Route: 048
  13. MOTRIN [Concomitant]
     Dosage: 600 MG, UNK
     Route: 048
  14. TOVIAZ [Suspect]
     Dosage: 8 MG, (Q DAY)
     Route: 048
  15. SOMA [Concomitant]
     Dosage: 350 MG, UNK
     Route: 048

REACTIONS (6)
  - BACK PAIN [None]
  - IRRITABLE BOWEL SYNDROME [None]
  - DEPRESSION [None]
  - URINARY INCONTINENCE [None]
  - ARTHRALGIA [None]
  - RHINITIS ALLERGIC [None]
